FAERS Safety Report 21285832 (Version 2)
Quarter: 2022Q4

REPORT INFORMATION
  Report Type: Spontaneous
  Country: AT (occurrence: AT)
  Receive Date: 20220902
  Receipt Date: 20221115
  Transmission Date: 20230113
  Serious: Yes (Other)
  Sender: FDA-Public Use
  Company Number: None

PATIENT
  Age: 89 Year
  Sex: Male
  Weight: 75 kg

DRUGS (5)
  1. LEVOFLOXACIN [Suspect]
     Active Substance: LEVOFLOXACIN
     Indication: Helicobacter infection
     Dosage: 2 DOSAGE FORM, QD (16.2.2022 BIS 18.2.2022 (1-0-1) ZWEIEINHALB TAGE, AM 3. TAG NUR AM VORMITTAG GENO
     Route: 065
     Dates: start: 20220216, end: 20220218
  2. PANTOPRAZOLE SODIUM [Concomitant]
     Active Substance: PANTOPRAZOLE SODIUM
     Indication: Product used for unknown indication
     Dosage: UNK (PANTOPRAZOL SANDOZ 40MG 1X)
     Route: 065
     Dates: start: 20220216
  3. METRONIDAZOLE [Concomitant]
     Active Substance: METRONIDAZOLE
     Indication: Product used for unknown indication
     Dosage: 2 DOSAGE FORM, QD (ANAEROBEX 1-0-1, AM 3. TAG NUR AM VORMITTAG GENOMMEN UND DANN ABGESETZT!!!  ES WU
     Route: 065
     Dates: start: 20220216, end: 20220218
  4. TRAZODONE HYDROCHLORIDE [Concomitant]
     Active Substance: TRAZODONE HYDROCHLORIDE
     Indication: Product used for unknown indication
     Dosage: UNK
     Route: 065
  5. AMOXICILLIN [Concomitant]
     Active Substance: AMOXICILLIN
     Indication: Product used for unknown indication
     Dosage: 2 DOSAGE FORM, QD (5 TAGE OSPAMOX 1000MG 1-0-1)
     Route: 065
     Dates: start: 20220216, end: 20220220

REACTIONS (11)
  - Gait disturbance [Not Recovered/Not Resolved]
  - Tendon rupture [Not Recovered/Not Resolved]
  - Asthenia [Not Recovered/Not Resolved]
  - Tendon pain [Not Recovered/Not Resolved]
  - Asthenia [Not Recovered/Not Resolved]
  - Quality of life decreased [Not Recovered/Not Resolved]
  - Pain in extremity [Not Recovered/Not Resolved]
  - Ageusia [Recovering/Resolving]
  - Decreased appetite [Recovering/Resolving]
  - Tendon disorder [Not Recovered/Not Resolved]
  - Tendon disorder [Not Recovered/Not Resolved]

NARRATIVE: CASE EVENT DATE: 20220101
